FAERS Safety Report 8507424-1 (Version None)
Quarter: 2012Q3

REPORT INFORMATION
  Report Type: 
  Country: None (occurrence: None)
  Receive Date: 20120712
  Receipt Date: 20120705
  Transmission Date: 20120928
  Serious: Yes (Hospitalization)
  Sender: FDA-Public Use
  Company Number: US-BAYER-2012-014759

PATIENT
  Age: 44 Year
  Sex: Female
  Weight: 70.748 kg

DRUGS (6)
  1. MULTI-VITAMIN [Concomitant]
     Dosage: UNK
     Route: 048
     Dates: start: 20100129
  2. CALCIUM CARBONATE [Concomitant]
     Dosage: 1000 MG, UNK
     Route: 048
     Dates: start: 20100129
  3. DROSPIRENONE AND ETHINYL ESTRADIOL [Suspect]
     Indication: MENOPAUSAL SYMPTOMS
     Dosage: UNK
     Dates: start: 20090501, end: 20100101
  4. ASCORBIC ACID [Concomitant]
     Dosage: UNK
     Route: 048
     Dates: start: 19850101
  5. POTASSIUM CHLORIDE [Concomitant]
     Dosage: UNK
     Route: 048
     Dates: start: 19850101
  6. YASMIN [Suspect]
     Indication: MENOPAUSAL SYMPTOMS
     Dosage: UNK
     Dates: start: 20040101, end: 20090101

REACTIONS (7)
  - ANXIETY [None]
  - FEAR [None]
  - DEEP VEIN THROMBOSIS [None]
  - ANHEDONIA [None]
  - PULMONARY EMBOLISM [None]
  - PSYCHOLOGICAL TRAUMA [None]
  - PAIN [None]
